FAERS Safety Report 24532555 (Version 1)
Quarter: 2024Q4

REPORT INFORMATION
  Report Type: Spontaneous
  Country: US (occurrence: US)
  Receive Date: 20241022
  Receipt Date: 20241022
  Transmission Date: 20250114
  Serious: Yes (Hospitalization, Other)
  Sender: MICRO LABS
  Company Number: US-862174955-ML2024-05550

PATIENT
  Age: 38 Year
  Sex: Male

DRUGS (5)
  1. CLOBAZAM [Suspect]
     Active Substance: CLOBAZAM
     Indication: Lennox-Gastaut syndrome
  2. LACOSAMIDE [Concomitant]
     Active Substance: LACOSAMIDE
     Indication: Lennox-Gastaut syndrome
  3. VALPROATE [Concomitant]
     Active Substance: VALPROIC ACID
     Indication: Angelman^s syndrome
  4. LEVETIRACETAM [Concomitant]
     Active Substance: LEVETIRACETAM
     Indication: Angelman^s syndrome
  5. LEVOCARNITINE [Concomitant]
     Active Substance: LEVOCARNITINE
     Indication: Angelman^s syndrome

REACTIONS (2)
  - Metabolic encephalopathy [Recovered/Resolved]
  - Condition aggravated [Recovered/Resolved]
